FAERS Safety Report 7902754-6 (Version None)
Quarter: 2011Q4

REPORT INFORMATION
  Report Type: 
  Country: None (occurrence: None)
  Receive Date: 20111109
  Receipt Date: 20111031
  Transmission Date: 20120403
  Serious: Yes (Hospitalization)
  Sender: FDA-Public Use
  Company Number: US-BIOGENIDEC-2011BI039894

PATIENT
  Age: 45 Year
  Sex: Female

DRUGS (22)
  1. ABILIFY [Concomitant]
  2. AMERGE [Concomitant]
  3. ARICEPT [Concomitant]
  4. DARVOCET [Concomitant]
  5. DOXYCYCLINE [Concomitant]
  6. BETHANECHOL [Concomitant]
  7. IRON SULFATETHIAMIN COMPOUND TAB [Concomitant]
  8. WELLBUTRIN [Concomitant]
  9. XANAX [Concomitant]
  10. ASCORBIC ACID [Concomitant]
  11. TYSABRI [Suspect]
     Indication: MULTIPLE SCLEROSIS
     Route: 042
     Dates: start: 20100628
  12. CALCIUM [Concomitant]
  13. CYMBALTA [Concomitant]
  14. LYRICA [Concomitant]
  15. SOMA [Concomitant]
  16. PRIMROSE [Concomitant]
  17. TEMAZEPAM [Concomitant]
  18. PROMETHAZINE [Concomitant]
  19. ASPIRIN [Concomitant]
  20. VITAMIN D [Concomitant]
  21. VITAMIN E [Concomitant]
  22. TOPAMAX [Concomitant]

REACTIONS (3)
  - WEIGHT DECREASED [None]
  - MIGRAINE WITH AURA [None]
  - OSTEOPENIA [None]
